FAERS Safety Report 4791289-8 (Version None)
Quarter: 2005Q4

REPORT INFORMATION
  Report Type: 
  Country: None (occurrence: None)
  Receive Date: 20051007
  Receipt Date: 20050815
  Transmission Date: 20060501
  Serious: Yes (Other)
  Sender: FDA-Public Use
  Company Number: 2005AC01242

PATIENT
  Age: 63 Year
  Sex: Female

DRUGS (5)
  1. IRESSA [Suspect]
     Indication: LUNG NEOPLASM MALIGNANT
     Route: 048
  2. VERAPAMIL [Concomitant]
     Indication: HYPERTENSION
  3. ATENOLOL [Concomitant]
     Indication: HYPERTENSION
  4. HYDROCORTITHIAZIDE/TRIAMTERENE [Concomitant]
     Indication: HYPERTENSION
  5. CYCLOSPORINE [Concomitant]
     Indication: KERATOCONJUNCTIVITIS SICCA

REACTIONS (12)
  - ACUTE FEBRILE NEUTROPHILIC DERMATOSIS [None]
  - CHEILITIS [None]
  - CONJUNCTIVITIS BACTERIAL [None]
  - CONJUNCTIVITIS VIRAL [None]
  - DRUG ERUPTION [None]
  - LEUKOCYTOSIS [None]
  - ORAL CANDIDIASIS [None]
  - PEMPHIGOID [None]
  - REFUSAL OF TREATMENT BY PATIENT [None]
  - SYSTEMIC LUPUS ERYTHEMATOSUS [None]
  - THROMBOCYTHAEMIA [None]
  - XEROSIS [None]
